FAERS Safety Report 8230741-X (Version None)
Quarter: 2012Q1

REPORT INFORMATION
  Report Type: 
  Country: None (occurrence: None)
  Receive Date: 20120322
  Receipt Date: 20120322
  Transmission Date: 20120608
  Serious: Yes (Hospitalization)
  Sender: FDA-Public Use
  Company Number: None

PATIENT
  Sex: Male
  Weight: 116.5 kg

DRUGS (8)
  1. RITUXIMAB (MOAB C2B8 ANTI CD20, CHIMERIC) [Suspect]
     Dosage: 800 MG
  2. VINCRISTINE SULFATE [Suspect]
     Dosage: 4 MG
  3. CYCLOPHOSPHAMIDE [Suspect]
     Dosage: 3520 MG
  4. CYTARABINE [Suspect]
     Dosage: 50 MG
  5. DOXORUBICIN HCL [Suspect]
     Dosage: 110 MG
  6. NEULASTA [Suspect]
     Dosage: 6 MG
  7. LEUCOVORIN CALCIUM [Suspect]
     Dosage: 820 MG
  8. METHOTREXATE [Suspect]
     Dosage: 6532 MG

REACTIONS (9)
  - PANCYTOPENIA [None]
  - ANAPHYLACTIC REACTION [None]
  - PYREXIA [None]
  - ACUTE RESPIRATORY DISTRESS SYNDROME [None]
  - SEPTIC SHOCK [None]
  - MYELODYSPLASTIC SYNDROME [None]
  - PAIN IN EXTREMITY [None]
  - POLYMYOSITIS [None]
  - CYTOKINE STORM [None]
